FAERS Safety Report 11751602 (Version 1)
Quarter: 2015Q4

REPORT INFORMATION
  Report Type: Spontaneous
  Country: US (occurrence: US)
  Receive Date: 20151118
  Receipt Date: 20151118
  Transmission Date: 20160304
  Serious: Yes (Hospitalization, Other)
  Sender: FDA-Public Use
  Company Number: US-MYLANLABS-2014M1013612

PATIENT
  Age: 53 Year
  Sex: Female
  Weight: 91.43 kg

DRUGS (1)
  1. PACLITAXEL INJECTION USP [Suspect]
     Active Substance: PACLITAXEL
     Indication: OVARIAN CANCER
     Dosage: 20 MG, UNK
     Route: 042
     Dates: start: 20141020, end: 20141202

REACTIONS (3)
  - Seizure [Recovered/Resolved]
  - Hypersensitivity [Recovered/Resolved]
  - Acute kidney injury [None]

NARRATIVE: CASE EVENT DATE: 20141202
